FAERS Safety Report 17105568 (Version 1)
Quarter: 2019Q4

REPORT INFORMATION
  Report Type: Spontaneous
  Country: US (occurrence: US)
  Receive Date: 20191203
  Receipt Date: 20191203
  Transmission Date: 20200122
  Serious: No
  Sender: FDA-Public Use
  Company Number: US-SUNOVION-2019SUN005216

PATIENT
  Sex: Female

DRUGS (3)
  1. LATUDA [Suspect]
     Active Substance: LURASIDONE HYDROCHLORIDE
     Indication: ATTENTION DEFICIT/HYPERACTIVITY DISORDER
     Dosage: 40 MG, QD (CUTTING 80 MG TABLET IN HALF)
     Route: 048
     Dates: end: 20191119
  2. LATUDA [Suspect]
     Active Substance: LURASIDONE HYDROCHLORIDE
     Indication: GENERALISED ANXIETY DISORDER
  3. LATUDA [Suspect]
     Active Substance: LURASIDONE HYDROCHLORIDE
     Indication: BIPOLAR II DISORDER
     Dosage: 10 MG, QD
     Route: 048
     Dates: start: 20181213

REACTIONS (10)
  - Therapy cessation [Unknown]
  - Insomnia [Unknown]
  - Anxiety [Unknown]
  - Wrong technique in product usage process [Unknown]
  - Cognitive disorder [Unknown]
  - Decreased activity [Unknown]
  - Depressed mood [Unknown]
  - Conversion disorder [Unknown]
  - Emotional disorder [Unknown]
  - Off label use [Unknown]
